FAERS Safety Report 4941297-9 (Version None)
Quarter: 2006Q1

REPORT INFORMATION
  Report Type: 
  Country: None (occurrence: None)
  Receive Date: 20060310
  Receipt Date: 20060310
  Transmission Date: 20060701
  Serious: No
  Sender: FDA-Public Use
  Company Number: None

PATIENT
  Age: 54 Year
  Sex: Male
  Weight: 74.8435 kg

DRUGS (1)
  1. ACIPHEX [Suspect]
     Dosage: 20 MG ONCE DAILY ORAL
     Route: 048
     Dates: start: 20060209

REACTIONS (2)
  - DRUG EFFECT DECREASED [None]
  - POOR QUALITY DRUG ADMINISTERED [None]
